FAERS Safety Report 21713098 (Version 2)
Quarter: 2023Q2

REPORT INFORMATION
  Report Type: Spontaneous
  Country: US (occurrence: US)
  Receive Date: 20221212
  Receipt Date: 20230519
  Transmission Date: 20230721
  Serious: Yes (Other)
  Sender: FDA-Public Use
  Company Number: US-BAYER-2022A166657

PATIENT
  Age: 42 Year
  Sex: Female
  Weight: 105.67 kg

DRUGS (2)
  1. MIRENA [Suspect]
     Active Substance: LEVONORGESTREL
     Indication: Contraception
     Dosage: 20?G/DAY
     Route: 015
     Dates: start: 2016, end: 20230202
  2. MIRENA [Suspect]
     Active Substance: LEVONORGESTREL
     Indication: Heavy menstrual bleeding

REACTIONS (4)
  - Embedded device [Recovered/Resolved]
  - Device breakage [None]
  - Genital haemorrhage [None]
  - Complication of device removal [None]

NARRATIVE: CASE EVENT DATE: 20221201
